FAERS Safety Report 9677753 (Version 1)
Quarter: 2013Q4

REPORT INFORMATION
  Report Type: Spontaneous
  Country: US (occurrence: None)
  Receive Date: 20131107
  Receipt Date: 20131107
  Transmission Date: 20140711
  Serious: Yes (Other)
  Sender: FDA-Public Use
  Company Number: None

PATIENT
  Age: 47 Year
  Sex: Female
  Weight: 56 kg

DRUGS (4)
  1. BACLOFEN [Suspect]
     Indication: MUSCLE SPASTICITY
     Dosage: 1 TABLET, TID, ORAL
     Route: 048
     Dates: start: 20121119, end: 20130113
  2. BACLOFEN [Suspect]
     Indication: DYSKINESIA
     Dosage: 1 TABLET, TID, ORAL
     Route: 048
     Dates: start: 20121119, end: 20130113
  3. OXYCODONE/ACETAMINOPHEN [Concomitant]
  4. GABAPENTIN [Concomitant]

REACTIONS (8)
  - Dyspnoea [None]
  - Headache [None]
  - Chest pain [None]
  - Mental status changes [None]
  - Delusion [None]
  - Treatment noncompliance [None]
  - Neurotoxicity [None]
  - Psychotic disorder [None]
